FAERS Safety Report 6627149-7 (Version None)
Quarter: 2010Q1

REPORT INFORMATION
  Report Type: 
  Country: None (occurrence: None)
  Receive Date: 20100311
  Receipt Date: 20091028
  Transmission Date: 20100710
  Serious: No
  Sender: FDA-Public Use
  Company Number: A0813730A

PATIENT
  Age: 54 Year
  Sex: Female

DRUGS (2)
  1. NICORETTE (MINT) [Suspect]
  2. NICODERM CQ [Suspect]

REACTIONS (4)
  - DRUG INEFFECTIVE [None]
  - GINGIVAL BLISTER [None]
  - ORAL DISCOMFORT [None]
  - ORAL PAIN [None]
